FAERS Safety Report 12489516 (Version 1)
Quarter: 2016Q2

REPORT INFORMATION
  Report Type: Not Available
  Country: NL (occurrence: NL)
  Receive Date: 20160622
  Receipt Date: 20160622
  Transmission Date: 20160815
  Serious: Yes (Life-Threatening, Hospitalization)
  Sender: FDA-Public Use
  Company Number: NL-PURDUE PHARMA-GBR-2016-0037194

PATIENT
  Age: 50 Year
  Sex: Male
  Weight: 68 kg

DRUGS (2)
  1. PARACETAMOL [Concomitant]
     Active Substance: ACETAMINOPHEN
     Dosage: 1000 MG, TID
     Dates: start: 20160603
  2. OXYCODONE HCL PR TABLET 20 MG [Suspect]
     Active Substance: OXYCODONE HYDROCHLORIDE
     Indication: PROCEDURAL PAIN
     Dosage: 20 MG, BID
     Route: 065
     Dates: start: 20160613, end: 20160615

REACTIONS (2)
  - Swollen tongue [Unknown]
  - Hypersensitivity [Unknown]

NARRATIVE: CASE EVENT DATE: 20160614
